FAERS Safety Report 8963055 (Version 1)
Quarter: 2012Q4

REPORT INFORMATION
  Report Type: 
  Country: BE (occurrence: BE)
  Receive Date: 20121213
  Receipt Date: 20121213
  Transmission Date: 20130627
  Serious: Yes (Disabling)
  Sender: FDA-Public Use
  Company Number: BE-B.I. PHARMACEUTICALS,INC./RIDGEFIELD-2012-BL-00548BL

PATIENT
  Sex: Female

DRUGS (6)
  1. PRADAXA [Suspect]
     Indication: ATRIAL FIBRILLATION
     Dosage: 300 mg
     Route: 048
     Dates: start: 20120801, end: 20120908
  2. CO-BISOPROLOL [Concomitant]
     Route: 048
  3. LESCOL [Concomitant]
     Route: 048
  4. PANTOPRAZOLE [Concomitant]
     Route: 048
  5. APROVEL [Concomitant]
     Route: 048
  6. GLUCOPHAGE [Concomitant]
     Route: 048

REACTIONS (1)
  - Malaise [Recovered/Resolved]
